FAERS Safety Report 17376326 (Version 3)
Quarter: 2020Q1

REPORT INFORMATION
  Report Type: Spontaneous
  Country: GR (occurrence: GR)
  Receive Date: 20200206
  Receipt Date: 20200218
  Transmission Date: 20200409
  Serious: Yes (Hospitalization)
  Sender: FDA-Public Use
  Company Number: NVSC2020GR029029

PATIENT
  Age: 77 Year
  Sex: Female

DRUGS (1)
  1. AMOXICILLIN,CLAVULANIC ACID [Suspect]
     Active Substance: AMOXICILLIN\CLAVULANIC ACID
     Indication: PRODUCT USED FOR UNKNOWN INDICATION
     Dosage: UNK
     Route: 065

REACTIONS (11)
  - Anaphylactic shock [Recovered/Resolved]
  - Pruritus [Recovered/Resolved]
  - Dizziness [Recovered/Resolved]
  - Kounis syndrome [Recovered/Resolved]
  - Dyspnoea [Recovered/Resolved]
  - Arteriospasm coronary [Unknown]
  - Cardio-respiratory arrest [Recovered/Resolved]
  - Hypotension [Recovered/Resolved]
  - Shock [Recovering/Resolving]
  - Drug hypersensitivity [Unknown]
  - Urticaria [Recovering/Resolving]
